FAERS Safety Report 9602855 (Version 2)
Quarter: 2013Q4

REPORT INFORMATION
  Report Type: Spontaneous
  Country: CN (occurrence: CN)
  Receive Date: 20131007
  Receipt Date: 20131022
  Transmission Date: 20140711
  Serious: Yes (Death)
  Sender: FDA-Public Use
  Company Number: CN-PFIZER INC-2013284902

PATIENT
  Age: 58 Year
  Sex: Male

DRUGS (6)
  1. MS CONTIN [Suspect]
     Indication: CANCER PAIN
     Dosage: 60 MG, 2X/DAY
     Route: 048
     Dates: start: 2012
  2. OXYCONTIN [Suspect]
     Indication: CANCER PAIN
     Dosage: 10 MG, EVERY 12 HOURS
     Route: 048
     Dates: start: 2012, end: 2012
  3. OXYCONTIN [Suspect]
     Dosage: 20 MG, EVERY 12 HOURS
     Route: 048
     Dates: start: 2012, end: 2012
  4. OXYCONTIN [Suspect]
     Dosage: 30 MG, EVERY 12 HOURS
     Route: 048
     Dates: start: 2012, end: 2012
  5. OXYCONTIN [Suspect]
     Dosage: 40 MG, EVERY 12 HOURS
     Route: 048
     Dates: start: 2012, end: 2012
  6. OXYCONTIN [Suspect]
     Dosage: 30 MG, EVERY 8 HOURS
     Route: 048
     Dates: start: 2012, end: 2012

REACTIONS (2)
  - Malignant neoplasm progression [Fatal]
  - Pancreatic carcinoma [Fatal]
